FAERS Safety Report 20850408 (Version 1)
Quarter: 2022Q2

REPORT INFORMATION
  Report Type: Spontaneous
  Country: KR (occurrence: KR)
  Receive Date: 20220519
  Receipt Date: 20220519
  Transmission Date: 20220721
  Serious: Yes (Hospitalization)
  Sender: FDA-Public Use
  Company Number: KR-STRIDES ARCOLAB LIMITED-2022SP005675

PATIENT
  Age: 4 Year
  Sex: Female

DRUGS (8)
  1. TACROLIMUS [Interacting]
     Active Substance: TACROLIMUS
     Indication: Acute graft versus host disease in skin
     Dosage: UNK
     Route: 065
     Dates: start: 201808
  2. DASATINIB [Interacting]
     Active Substance: DASATINIB
     Indication: Chronic myeloid leukaemia
     Dosage: UNK (INITIAL DOSAGE NOT STATED)
     Route: 065
  3. DASATINIB [Interacting]
     Active Substance: DASATINIB
     Dosage: 70 MILLIGRAM, UNKNOWN
     Route: 065
  4. DASATINIB [Interacting]
     Active Substance: DASATINIB
     Dosage: 60 MILLIGRAM, UNKNOWN
     Route: 065
  5. PERAMIVIR [Concomitant]
     Active Substance: PERAMIVIR
     Indication: Influenza
     Dosage: UNK
     Route: 065
  6. ETOPOSIDE [Concomitant]
     Active Substance: ETOPOSIDE
     Indication: Bone marrow conditioning regimen
     Dosage: UNK
     Route: 065
  7. BUSULFAN [Concomitant]
     Active Substance: BUSULFAN
     Indication: Bone marrow conditioning regimen
     Dosage: UNK
     Route: 065
  8. FLUDARABINE [Concomitant]
     Active Substance: FLUDARABINE PHOSPHATE
     Indication: Bone marrow conditioning regimen
     Dosage: UNK
     Route: 065

REACTIONS (3)
  - Drug interaction [Unknown]
  - Pulmonary arterial hypertension [Recovered/Resolved]
  - Drug ineffective for unapproved indication [Unknown]
